FAERS Safety Report 4269213-6 (Version None)
Quarter: 2004Q1

REPORT INFORMATION
  Report Type: 
  Country: None (occurrence: None)
  Receive Date: 20040112
  Receipt Date: 20040112
  Transmission Date: 20041129
  Serious: Yes (Hospitalization)
  Sender: FDA-Public Use
  Company Number: None

PATIENT
  Age: 78 Year
  Sex: Male
  Weight: 90.2 kg

DRUGS (1)
  1. AMPCILLIN/SULBACTAM [Suspect]
     Indication: CELLULITIS
     Dosage: 3G Q+H, 3G Q6H, INTRAVEN
     Route: 042
     Dates: start: 20031006, end: 20031010

REACTIONS (1)
  - RASH [None]
